FAERS Safety Report 25056174 (Version 1)
Quarter: 2025Q1

REPORT INFORMATION
  Report Type: Report from Study
  Country: US (occurrence: US)
  Receive Date: 20250309
  Receipt Date: 20250309
  Transmission Date: 20250409
  Serious: Yes (Other)
  Sender: ABBVIE
  Company Number: US-ABBVIE-6152848

PATIENT
  Age: 62 Year
  Sex: Female

DRUGS (4)
  1. HUMIRA [Suspect]
     Active Substance: ADALIMUMAB
     Indication: Psoriatic arthropathy
     Route: 058
     Dates: end: 202409
  2. TYLENOL [Concomitant]
     Active Substance: ACETAMINOPHEN
     Indication: Back pain
  3. METHOTREXATE [Concomitant]
     Active Substance: METHOTREXATE
     Indication: Product used for unknown indication
  4. XIIDRA [Concomitant]
     Active Substance: LIFITEGRAST
     Indication: Product used for unknown indication

REACTIONS (12)
  - Intervertebral disc degeneration [Unknown]
  - Back pain [Recovering/Resolving]
  - Gait disturbance [Recovering/Resolving]
  - Sinusitis [Not Recovered/Not Resolved]
  - Spinal stenosis [Unknown]
  - Sciatica [Unknown]
  - Sjogren^s syndrome [Unknown]
  - Dysstasia [Unknown]
  - Mobility decreased [Recovering/Resolving]
  - Sinus congestion [Recovering/Resolving]
  - Urinary tract infection [Recovering/Resolving]
  - Psoriasis [Not Recovered/Not Resolved]

NARRATIVE: CASE EVENT DATE: 20100101
